FAERS Safety Report 23309979 (Version 1)
Quarter: 2023Q4

REPORT INFORMATION
  Report Type: Report from Study
  Country: US (occurrence: US)
  Receive Date: 20231218
  Receipt Date: 20231218
  Transmission Date: 20240110
  Serious: Yes (Other)
  Sender: FDA-Public Use
  Company Number: US-PFIZER INC-202300337460

PATIENT
  Age: 64 Year
  Sex: Male
  Weight: 83.9 kg

DRUGS (11)
  1. BRAFTOVI [Suspect]
     Active Substance: ENCORAFENIB
     Indication: Tracheal cancer
     Dosage: 75MG ,CAPSULE TAKE 6 CAPSULE
     Route: 048
     Dates: start: 20230831
  2. MEKTOVI [Suspect]
     Active Substance: BINIMETINIB
     Indication: Tracheal cancer
     Dosage: TAKE 3 TABLET (45MG) EVERY 12 HOUR
     Route: 048
     Dates: start: 20230831
  3. ASPIRIN [Concomitant]
     Active Substance: ASPIRIN
     Dosage: UNK
  4. BISOPROLOL FUMARATE [Concomitant]
     Active Substance: BISOPROLOL FUMARATE
     Dosage: UNK
  5. EPINEPHRINE [Concomitant]
     Active Substance: EPINEPHRINE
     Dosage: UNK
  6. EZETIMIBE [Concomitant]
     Active Substance: EZETIMIBE
     Dosage: UNK
  7. METFORMIN [Concomitant]
     Active Substance: METFORMIN HYDROCHLORIDE
     Dosage: UNK
  8. PLAVIX [Concomitant]
     Active Substance: CLOPIDOGREL BISULFATE
     Dosage: UNK
  9. RAMIPRIL [Concomitant]
     Active Substance: RAMIPRIL
     Dosage: UNK
  10. ROSUVASTATIN CALCIUM [Concomitant]
     Active Substance: ROSUVASTATIN CALCIUM
     Dosage: UNK
  11. SYNTHROID [Concomitant]
     Active Substance: LEVOTHYROXINE SODIUM
     Dosage: UNK

REACTIONS (15)
  - Renal impairment [Unknown]
  - Fatigue [Not Recovered/Not Resolved]
  - Blood blister [Recovered/Resolved]
  - Pain [Unknown]
  - Myalgia [Unknown]
  - Nausea [Unknown]
  - Poor quality sleep [Unknown]
  - Eating disorder [Unknown]
  - Heart rate increased [Unknown]
  - Feeling abnormal [Unknown]
  - Disturbance in attention [Unknown]
  - Chest pain [Unknown]
  - Hepatic function abnormal [Unknown]
  - Pyrexia [Recovered/Resolved]
  - Off label use [Unknown]

NARRATIVE: CASE EVENT DATE: 20230101
